FAERS Safety Report 8351550 (Version 3)
Quarter: 2012Q4

REPORT INFORMATION
  Report Type: 
  Country: ES (occurrence: ES)
  Receive Date: 20120124
  Receipt Date: 20121010
  Transmission Date: 20130627
  Serious: Yes (Other)
  Sender: FDA-Public Use
  Company Number: ES-ROCHE-1032324

PATIENT
  Age: 27 Year
  Sex: Female

DRUGS (2)
  1. XOLAIR [Suspect]
     Indication: ASTHMA
     Route: 058
     Dates: start: 20090416, end: 20111229
  2. RILAST [Concomitant]

REACTIONS (3)
  - Bronchospasm [Unknown]
  - Exposure during pregnancy [Unknown]
  - Caesarean section [Unknown]
